FAERS Safety Report 9170208 (Version 1)
Quarter: 2013Q1

REPORT INFORMATION
  Report Type: Spontaneous
  Country: US (occurrence: None)
  Receive Date: 20130311
  Receipt Date: 20130311
  Transmission Date: 20140127
  Serious: Yes (Other)
  Sender: FDA-Public Use
  Company Number: AUR-APL-2013-01968

PATIENT
  Age: 69 Year
  Sex: Female

DRUGS (3)
  1. SIMVASTATIN [Suspect]
     Indication: PRODUCT USED FOR UNKNOWN INDICATION
  2. ATORVASTATIN CALCIUM (ATORVASTATIN CALCIUM) [Suspect]
     Indication: PRODUCT USED FOR UNKNOWN INDICATION
  3. FENOFIBRATE (FENOFIBRATE) (FENOFIBRATE) [Suspect]

REACTIONS (7)
  - Myalgia [None]
  - Neuropathy peripheral [None]
  - Paraesthesia [None]
  - Spinal column stenosis [None]
  - Radiculopathy [None]
  - Diabetic neuropathy [None]
  - Vitamin B12 deficiency [None]
